FAERS Safety Report 8571628 (Version 8)
Quarter: 2013Q2

REPORT INFORMATION
  Report Type: Spontaneous
  Country: US (occurrence: US)
  Receive Date: 20120521
  Receipt Date: 20130502
  Transmission Date: 20140414
  Serious: Yes (Hospitalization, Disabling, Other)
  Sender: FDA-Public Use
  Company Number: US-009507513-1205USA02883

PATIENT
  Sex: Female
  Weight: 76.19 kg

DRUGS (4)
  1. FOSAMAX [Suspect]
     Indication: OSTEITIS DEFORMANS
     Dosage: UNK UNK, QD
     Route: 048
     Dates: start: 1996
  2. FOSAMAX [Suspect]
     Dosage: 70 MG, QW
     Route: 048
  3. FOSAMAX [Suspect]
     Dosage: 10 MG, UNK
     Route: 048
     Dates: start: 1996
  4. CALCIUM (UNSPECIFIED) [Concomitant]
     Dosage: UNK
     Dates: start: 1990

REACTIONS (66)
  - Femur fracture [Not Recovered/Not Resolved]
  - Surgery [Unknown]
  - Osteoporosis [Not Recovered/Not Resolved]
  - Femur fracture [Not Recovered/Not Resolved]
  - Internal fixation of fracture [Unknown]
  - Low turnover osteopathy [Not Recovered/Not Resolved]
  - Device failure [Unknown]
  - Femur fracture [Unknown]
  - Knee arthroplasty [Unknown]
  - Osteoarthritis [Unknown]
  - Hysterectomy [Unknown]
  - Myocardial infarction [Unknown]
  - Open reduction of fracture [Unknown]
  - Device failure [Unknown]
  - Femur fracture [Unknown]
  - Pulmonary mass [Unknown]
  - Sinus tachycardia [Unknown]
  - Left atrial dilatation [Unknown]
  - QRS axis abnormal [Unknown]
  - Hyponatraemia [Unknown]
  - Urinary tract infection [Unknown]
  - Hypoacusis [Unknown]
  - Cellulitis [Unknown]
  - Dyslipidaemia [Unknown]
  - Spinal osteoarthritis [Unknown]
  - Amnesia [Unknown]
  - Hallucination [Unknown]
  - Fatigue [Unknown]
  - Depression [Unknown]
  - Osteopenia [Unknown]
  - Pleural fibrosis [Unknown]
  - Pleural effusion [Unknown]
  - Pulmonary mass [Unknown]
  - Seborrhoeic keratosis [Unknown]
  - Urinary tract infection [Unknown]
  - Pollakiuria [Unknown]
  - Micturition urgency [Unknown]
  - Renal function test abnormal [Unknown]
  - Repetitive strain injury [Unknown]
  - Groin pain [Unknown]
  - Hiatus hernia [Unknown]
  - Mitral valve stenosis [Unknown]
  - Mitral valve incompetence [Unknown]
  - Chest pain [Unknown]
  - Pulmonary hypertension [Unknown]
  - Road traffic accident [Unknown]
  - Excoriation [Unknown]
  - Tricuspid valve incompetence [Unknown]
  - Meningioma [Unknown]
  - Ulna fracture [Unknown]
  - Blood creatinine increased [Unknown]
  - Mental disorder due to a general medical condition [Unknown]
  - Radius fracture [Unknown]
  - Wrist fracture [Unknown]
  - Ulna fracture [Unknown]
  - Osteoarthritis [Unknown]
  - Fracture [Unknown]
  - Soft tissue neoplasm [Unknown]
  - Incorrect dose administered [Unknown]
  - Limb injury [Unknown]
  - Osteitis deformans [Unknown]
  - Gastrooesophageal reflux disease [Unknown]
  - Pain in extremity [Unknown]
  - Abdominal discomfort [Unknown]
  - Constipation [Unknown]
  - Local swelling [Unknown]
